FAERS Safety Report 8571728 (Version 5)
Quarter: 2014Q2

REPORT INFORMATION
  Report Type: Spontaneous
  Country: US (occurrence: US)
  Receive Date: 20120521
  Receipt Date: 20140516
  Transmission Date: 20141212
  Serious: Yes (Death, Hospitalization)
  Sender: FDA-Public Use
  Company Number: US-B.I. PHARMACEUTICALS,INC./RIDGEFIELD-2012-BP-11041BP

PATIENT
  Sex: Female

DRUGS (23)
  1. PRADAXA [Suspect]
     Indication: ATRIAL FIBRILLATION
     Dosage: 300 MG
     Route: 065
     Dates: start: 20110519, end: 20111205
  2. PRADAXA [Suspect]
     Indication: ANTICOAGULANT THERAPY
     Dosage: 150 MG
     Route: 065
     Dates: start: 20111205, end: 20111223
  3. METFORMIN [Concomitant]
     Dosage: 1000 MG
     Route: 065
     Dates: start: 200911, end: 201112
  4. MELOXICAM [Concomitant]
     Dosage: 15 MG
     Route: 065
     Dates: start: 201001, end: 201112
  5. GLYBURIDE [Concomitant]
     Dosage: 10 MG
     Route: 065
     Dates: start: 200911, end: 201112
  6. JANUVIA [Concomitant]
     Dosage: 50 MG
     Route: 065
     Dates: start: 201003, end: 201112
  7. HYDROCODONE/APAP [Concomitant]
     Route: 065
     Dates: start: 201105, end: 201112
  8. COREG [Concomitant]
     Dosage: 6.25 MG
     Route: 065
     Dates: start: 201111, end: 201112
  9. ISORDIL [Concomitant]
     Dosage: 30 MG
     Route: 065
     Dates: start: 201105, end: 201112
  10. AMLODIPINE [Concomitant]
     Dosage: 5 MG
     Route: 065
     Dates: start: 200906, end: 201112
  11. LOSARTAN [Concomitant]
     Dosage: 25 MG
     Route: 065
     Dates: start: 201111, end: 201112
  12. LOVASTATIN [Concomitant]
     Route: 065
     Dates: start: 200910, end: 201112
  13. GABAPENTIN [Concomitant]
     Dosage: 600 MG
     Route: 065
     Dates: start: 201102, end: 201111
  14. BACTRIM [Concomitant]
     Route: 065
     Dates: start: 200602, end: 201111
  15. LASIX [Concomitant]
     Dosage: 40 MG
     Route: 065
     Dates: start: 200602
  16. DIGOXIN [Concomitant]
     Route: 065
     Dates: start: 200602, end: 201111
  17. TESSALON PERLES [Concomitant]
     Route: 065
  18. CIPRO [Concomitant]
     Dosage: 1000 MG
     Route: 065
  19. MEELIZININE [Concomitant]
     Route: 065
  20. OXYBUTYNIN [Concomitant]
     Dosage: 5 MG
     Route: 065
     Dates: start: 200905, end: 201112
  21. HYDROMORPHONE [Concomitant]
     Dosage: 12 MG
     Route: 065
  22. PHENERGAN [Concomitant]
     Dosage: 25 MG
     Route: 065
  23. PRAVASTATIN [Concomitant]
     Dosage: 1 MG
     Route: 065

REACTIONS (3)
  - Cerebral haemorrhage [Fatal]
  - Renal haemorrhage [Recovered/Resolved]
  - Anaemia [Unknown]
